FAERS Safety Report 6111081-1 (Version None)
Quarter: 2009Q1

REPORT INFORMATION
  Report Type: 
  Country: None (occurrence: None)
  Receive Date: 20090306
  Receipt Date: 20090306
  Transmission Date: 20090719
  Serious: No
  Sender: FDA-Public Use
  Company Number: None

PATIENT

DRUGS (1)
  1. TOPAMAX [Suspect]

REACTIONS (27)
  - ANOREXIA [None]
  - CRYING [None]
  - DIARRHOEA [None]
  - DRUG INEFFECTIVE [None]
  - DRY SKIN [None]
  - DYSGEUSIA [None]
  - EMOTIONAL DISORDER [None]
  - ERYTHEMA [None]
  - FEELING COLD [None]
  - GINGIVAL PAIN [None]
  - GLOSSODYNIA [None]
  - HYPOVOLAEMIA [None]
  - LIP DRY [None]
  - MUSCLE SPASMS [None]
  - MUSCLE TIGHTNESS [None]
  - NASAL DISORDER [None]
  - NASAL DRYNESS [None]
  - OPEN WOUND [None]
  - PAIN OF SKIN [None]
  - PERIPHERAL COLDNESS [None]
  - PLANTAR FASCIITIS [None]
  - PRURITUS [None]
  - RHINALGIA [None]
  - SKIN DISORDER [None]
  - SNEEZING [None]
  - STOMATITIS [None]
  - WEIGHT DECREASED [None]
